FAERS Safety Report 4557082-6 (Version None)
Quarter: 2005Q1

REPORT INFORMATION
  Report Type: 
  Country: None (occurrence: None)
  Receive Date: 20050120
  Receipt Date: 20050111
  Transmission Date: 20050727
  Serious: Yes (Other)
  Sender: FDA-Public Use
  Company Number: NL-GLAXOSMITHKLINE-B0364818A

PATIENT
  Age: 62 Year
  Sex: Female

DRUGS (2)
  1. MALARONE [Suspect]
     Indication: MALARIA PROPHYLAXIS
     Dosage: 1TAB PER DAY
     Dates: start: 20041106, end: 20041109
  2. COTRIM [Concomitant]
     Indication: DIARRHOEA
     Dates: start: 20041104

REACTIONS (3)
  - HALLUCINATION [None]
  - NIGHT SWEATS [None]
  - NIGHTMARE [None]
